FAERS Safety Report 5263098-7 (Version None)
Quarter: 2007Q1

REPORT INFORMATION
  Report Type: 
  Country: None (occurrence: None)
  Receive Date: 20070312
  Receipt Date: 20070306
  Transmission Date: 20070707
  Serious: Yes (Hospitalization, Other)
  Sender: FDA-Public Use
  Company Number: FR-PFIZER INC-2006122450

PATIENT
  Sex: Female
  Weight: 112 kg

DRUGS (9)
  1. SOMAVERT [Suspect]
     Indication: PITUITARY TUMOUR BENIGN
     Route: 058
     Dates: start: 20051201, end: 20061003
  2. SOMATULINE PR [Concomitant]
     Indication: PITUITARY TUMOUR BENIGN
     Dosage: TEXT:120 MILLIGRAM
     Route: 030
  3. GLUCOPHAGE [Concomitant]
     Indication: DIABETES MELLITUS
     Dosage: DAILY DOSE:3GRAM
     Route: 048
     Dates: start: 20040101, end: 20061003
  4. AMARYL [Concomitant]
     Indication: DIABETES MELLITUS
     Dosage: DAILY DOSE:6MG
     Route: 048
     Dates: start: 20060712, end: 20061003
  5. ACTOS [Concomitant]
     Indication: DIABETES MELLITUS
     Dosage: DAILY DOSE:45MG
     Route: 048
     Dates: start: 20060712, end: 20061003
  6. ZESTRIL [Concomitant]
     Indication: HYPERTENSION
     Dosage: DAILY DOSE:20MG
     Route: 048
     Dates: start: 20040101, end: 20070228
  7. AMLODIPINE [Concomitant]
     Indication: HYPERTENSION
     Dosage: DAILY DOSE:5MG
     Route: 048
     Dates: start: 20051227, end: 20070201
  8. HYPERIUM [Concomitant]
     Indication: HYPERTENSION
     Dosage: DAILY DOSE:2MG
     Route: 048
     Dates: start: 20050101, end: 20060101
  9. DOSTINEX [Concomitant]
     Indication: PITUITARY TUMOUR BENIGN
     Route: 048
     Dates: start: 20050701

REACTIONS (1)
  - RENAL FAILURE ACUTE [None]
